FAERS Safety Report 10736602 (Version 2)
Quarter: 2015Q1

REPORT INFORMATION
  Report Type: Spontaneous
  Country: US (occurrence: US)
  Receive Date: 20150126
  Receipt Date: 20150203
  Transmission Date: 20150721
  Serious: Yes (Hospitalization)
  Sender: FDA-Public Use
  Company Number: US-EMD SERONO-8006108

PATIENT
  Sex: Female
  Weight: 47 kg

DRUGS (3)
  1. REBIF [Suspect]
     Active Substance: INTERFERON BETA-1A
     Dates: end: 2010
  2. REBIF [Suspect]
     Active Substance: INTERFERON BETA-1A
     Dates: start: 2011, end: 201412
  3. REBIF [Suspect]
     Active Substance: INTERFERON BETA-1A
     Indication: MULTIPLE SCLEROSIS
     Dates: start: 2003, end: 2004

REACTIONS (4)
  - Urinary bladder rupture [Recovered/Resolved]
  - Nephrolithiasis [Recovered/Resolved]
  - Hypoaesthesia [Recovered/Resolved]
  - Kidney infection [Unknown]

NARRATIVE: CASE EVENT DATE: 2008
